FAERS Safety Report 6987522-4 (Version None)
Quarter: 2010Q3

REPORT INFORMATION
  Report Type: 
  Country: None (occurrence: None)
  Receive Date: 20100916
  Receipt Date: 20100901
  Transmission Date: 20110219
  Serious: No
  Sender: FDA-Public Use
  Company Number: US-PFIZER INC-2010110782

PATIENT
  Sex: Female

DRUGS (3)
  1. XALATAN [Suspect]
  2. ALPHAGAN [Suspect]
  3. AZOPT [Suspect]

REACTIONS (4)
  - DRY EYE [None]
  - EYE IRRITATION [None]
  - EYE PAIN [None]
  - OCULAR HYPERAEMIA [None]
